FAERS Safety Report 17820795 (Version 11)
Quarter: 2021Q4

REPORT INFORMATION
  Report Type: Spontaneous
  Country: US (occurrence: US)
  Receive Date: 20200525
  Receipt Date: 20211210
  Transmission Date: 20220304
  Serious: Yes (Other)
  Sender: FDA-Public Use
  Company Number: US-PFIZER INC-2020202034

PATIENT
  Age: 65 Year
  Sex: Female

DRUGS (2)
  1. LYRICA [Suspect]
     Active Substance: PREGABALIN
     Indication: Eye pain
     Dosage: 100 MG, 3X/DAY
     Route: 048
     Dates: start: 201908
  2. LYRICA [Suspect]
     Active Substance: PREGABALIN
     Indication: Neuralgia
     Dosage: 100 MG ORAL CAPSULE, 1 CAP IN AM, 1 CAP MIDDAY, AND 2 AT BEDTIME
     Route: 048
     Dates: start: 20211129

REACTIONS (5)
  - Blindness unilateral [Unknown]
  - Off label use [Unknown]
  - Drug effective for unapproved indication [Unknown]
  - Pain [Unknown]
  - Tremor [Unknown]

NARRATIVE: CASE EVENT DATE: 20190801
